FAERS Safety Report 16652471 (Version 1)
Quarter: 2019Q3

REPORT INFORMATION
  Report Type: Spontaneous
  Country: US (occurrence: US)
  Receive Date: 20190731
  Receipt Date: 20190731
  Transmission Date: 20191004
  Serious: No
  Sender: FDA-Public Use
  Company Number: US-009507513-1907USA014845

PATIENT
  Sex: Female

DRUGS (9)
  1. ENDOMETRIN [Concomitant]
     Active Substance: PROGESTERONE
  2. ESTRADIOL. [Concomitant]
     Active Substance: ESTRADIOL
  3. OVIDREL [Concomitant]
     Active Substance: CHORIOGONADOTROPIN ALFA
  4. GANIRELIX ACETATE INJECTION [Suspect]
     Active Substance: GANIRELIX ACETATE
     Indication: INFERTILITY FEMALE
     Dosage: 250 MICROGRAM, AS NEEDED (PRN)
     Route: 058
     Dates: start: 20180414
  5. METHYLPREDNISOLONE. [Concomitant]
     Active Substance: METHYLPREDNISOLONE
  6. NOVAREL [Concomitant]
     Active Substance: CHORIOGONADOTROPIN ALFA
  7. PROGESTERONE. [Concomitant]
     Active Substance: PROGESTERONE
  8. AZITHROMYCIN ANHYDROUS. [Concomitant]
     Active Substance: AZITHROMYCIN ANHYDROUS
  9. FOLLISTIM [Suspect]
     Active Substance: FOLLITROPIN
     Indication: INFERTILITY FEMALE
     Dosage: 450 INTERNATIONAL UNIT, FOR 10-14 DAYS
     Route: 058
     Dates: start: 20180207

REACTIONS (1)
  - Contusion [Unknown]
